FAERS Safety Report 22124836 (Version 1)
Quarter: 2023Q1

REPORT INFORMATION
  Report Type: Spontaneous
  Country: US (occurrence: US)
  Receive Date: 20230322
  Receipt Date: 20230322
  Transmission Date: 20230418
  Serious: No
  Sender: FDA-Public Use
  Company Number: US-AADI BIOSCIENCE, INC-2023AAD000015

PATIENT

DRUGS (1)
  1. FYARRO [Suspect]
     Active Substance: SIROLIMUS
     Indication: Perivascular epithelioid cell tumour
     Dosage: UNK
     Dates: start: 2022

REACTIONS (6)
  - Stomatitis [Unknown]
  - Aphthous ulcer [Unknown]
  - Fatigue [Unknown]
  - Pruritus [Unknown]
  - Alopecia [Unknown]
  - Rash [Unknown]
